FAERS Safety Report 5376043-0 (Version None)
Quarter: 2007Q3

REPORT INFORMATION
  Report Type: 
  Country: None (occurrence: None)
  Receive Date: 20070702
  Receipt Date: 20070621
  Transmission Date: 20080115
  Serious: Yes (Other)
  Sender: FDA-Public Use
  Company Number: CH-AVENTIS-200715601GDDC

PATIENT
  Age: 48 Year
  Sex: Female
  Weight: 62 kg

DRUGS (2)
  1. FLAGYL [Suspect]
     Dosage: DOSE: 2 TABLETS DAILY
     Route: 048
     Dates: start: 20070122, end: 20070201
  2. CIPROXIN                           /00697201/ [Suspect]
     Route: 048
     Dates: start: 20070130, end: 20070201

REACTIONS (5)
  - INSOMNIA [None]
  - PALPITATIONS [None]
  - PANIC REACTION [None]
  - PYREXIA [None]
  - TINNITUS [None]
